FAERS Safety Report 5421921-7 (Version None)
Quarter: 2007Q3

REPORT INFORMATION
  Report Type: 
  Country: None (occurrence: None)
  Receive Date: 20070822
  Receipt Date: 20070816
  Transmission Date: 20080115
  Serious: Yes (Death, Hospitalization)
  Sender: FDA-Public Use
  Company Number: US-BAXTER-2007BH003405

PATIENT
  Age: 58 Year
  Sex: Male

DRUGS (2)
  1. DIANEAL [Suspect]
     Indication: RENAL FAILURE CHRONIC
     Route: 033
     Dates: start: 20070208
  2. DIANEAL [Suspect]
     Indication: RENAL FAILURE CHRONIC
     Route: 033
     Dates: start: 20070208

REACTIONS (7)
  - BLOOD PRESSURE DECREASED [None]
  - DEPRESSION [None]
  - FLUID RETENTION [None]
  - PERITONITIS BACTERIAL [None]
  - PLEURITIC PAIN [None]
  - SEPSIS [None]
  - URINE OUTPUT DECREASED [None]
